FAERS Safety Report 5351161-1 (Version None)
Quarter: 2007Q2

REPORT INFORMATION
  Report Type: 
  Country: None (occurrence: None)
  Receive Date: 20070608
  Receipt Date: 20070531
  Transmission Date: 20071010
  Serious: No
  Sender: FDA-Public Use
  Company Number: US-ASTRAZENECA-2006UW08160

PATIENT
  Age: 44 Year
  Sex: Male
  Weight: 88.6 kg

DRUGS (1)
  1. SEROQUEL [Suspect]
     Indication: SCHIZOPHRENIA
     Route: 048
     Dates: start: 19960101, end: 20060101

REACTIONS (1)
  - DIABETES MELLITUS [None]
